FAERS Safety Report 14433967 (Version 1)
Quarter: 2018Q1

REPORT INFORMATION
  Report Type: Spontaneous
  Country: US (occurrence: US)
  Receive Date: 20180124
  Receipt Date: 20180124
  Transmission Date: 20180509
  Serious: No
  Sender: FDA-Public Use
  Company Number: US-TAKEDA-2018MPI000571

PATIENT
  Sex: Male

DRUGS (1)
  1. NINLARO [Suspect]
     Active Substance: IXAZOMIB CITRATE
     Indication: ANAEMIA
     Dosage: 4 MG, UNK
     Route: 048
     Dates: start: 201712

REACTIONS (3)
  - Nasopharyngitis [Unknown]
  - Back pain [Unknown]
  - Off label use [Unknown]
